FAERS Safety Report 17665002 (Version 2)
Quarter: 2020Q2

REPORT INFORMATION
  Report Type: Spontaneous
  Country: US (occurrence: US)
  Receive Date: 20200414
  Receipt Date: 20200428
  Transmission Date: 20200713
  Serious: No
  Sender: FDA-Public Use
  Company Number: US-PFIZER INC-2020153043

PATIENT
  Age: 71 Year
  Sex: Female
  Weight: 64.4 kg

DRUGS (3)
  1. LYRICA [Concomitant]
     Active Substance: PREGABALIN
     Indication: NEURALGIA
     Dosage: 200 MG, DAILY(100 MG EVERY 12 HOURS)
     Dates: start: 20190403
  2. MORPHINE SULFATE. [Suspect]
     Active Substance: MORPHINE SULFATE
     Indication: PAIN
     Dosage: 4 MG, UNK
     Route: 042
     Dates: start: 20190721
  3. MS CONTIN [Suspect]
     Active Substance: MORPHINE SULFATE
     Indication: PAIN
     Dosage: 15 MG, 2X/DAY (15 MG EVERY 12 HOURS)
     Route: 048
     Dates: start: 20190318, end: 20190721

REACTIONS (1)
  - Balance disorder [Unknown]
